FAERS Safety Report 4604859-4 (Version None)
Quarter: 2005Q2

REPORT INFORMATION
  Report Type: 
  Country: None (occurrence: None)
  Receive Date: 20050217
  Receipt Date: 20050114
  Transmission Date: 20051028
  Serious: No
  Sender: FDA-Public Use
  Company Number: S05-USA-00200-01

PATIENT
  Age: 80 Year
  Sex: Female

DRUGS (3)
  1. NAMENDA [Suspect]
     Indication: DEMENTIA
     Dosage: 5 MG QD PO
     Route: 048
     Dates: start: 20050109, end: 20050114
  2. PARKINSON'S MEDICATION (NOS) [Concomitant]
  3. MILK OF MAGNESIA [Concomitant]

REACTIONS (2)
  - CONFUSIONAL STATE [None]
  - URINARY RETENTION [None]
